FAERS Safety Report 6929221-0 (Version None)
Quarter: 2010Q3

REPORT INFORMATION
  Report Type: 
  Country: None (occurrence: None)
  Receive Date: 20100813
  Receipt Date: 20100810
  Transmission Date: 20110219
  Serious: Yes (Other)
  Sender: FDA-Public Use
  Company Number: 1000015599

PATIENT
  Sex: Female

DRUGS (3)
  1. LEXAPRO [Suspect]
     Indication: DEPRESSION
     Dosage: SEVERAL TABLETS, ORAL
     Route: 048
  2. BENADRYL [Suspect]
  3. ALCOHOL [Suspect]
     Indication: ALCOHOL USE
     Dosage: 2 GLASSES OF WINE, ORAL
     Route: 048

REACTIONS (3)
  - ALCOHOL USE [None]
  - BLOOD ALCOHOL ABNORMAL [None]
  - LOSS OF CONSCIOUSNESS [None]
